FAERS Safety Report 5473702-6 (Version None)
Quarter: 2007Q3

REPORT INFORMATION
  Report Type: 
  Country: None (occurrence: None)
  Receive Date: 20070831
  Receipt Date: 20070605
  Transmission Date: 20080115
  Serious: No
  Sender: FDA-Public Use
  Company Number: 242490

PATIENT
  Age: 89 Year
  Sex: Female

DRUGS (5)
  1. LUCENTIS [Suspect]
     Indication: MACULAR DEGENERATION
     Dates: start: 20061001
  2. PRINIVIL [Concomitant]
  3. MULTIVITAMIN (MULTIVITAMINS NOS) [Concomitant]
  4. COQ-10 (UBIDECARENONE) [Concomitant]
  5. B-COMPLEX (VITAMIN B COMPLEX) [Concomitant]

REACTIONS (1)
  - BLOOD PRESSURE INCREASED [None]
